FAERS Safety Report 21930431 (Version 1)
Quarter: 2023Q1

REPORT INFORMATION
  Report Type: Spontaneous
  Country: AU (occurrence: AU)
  Receive Date: 20230131
  Receipt Date: 20230131
  Transmission Date: 20230418
  Serious: Yes (Hospitalization)
  Sender: FDA-Public Use
  Company Number: AU-TAKEDA-2023TUS008579

PATIENT
  Sex: Female

DRUGS (6)
  1. VYVANSE [Suspect]
     Active Substance: LISDEXAMFETAMINE DIMESYLATE
     Indication: Attention deficit hyperactivity disorder
     Dosage: 70 MILLIGRAM, QD
     Route: 048
  2. AMPHETAMINE [Concomitant]
     Active Substance: AMPHETAMINE
     Indication: Attention deficit hyperactivity disorder
     Route: 065
  3. IBUPROFEN [Concomitant]
     Active Substance: IBUPROFEN
     Indication: Pain
     Route: 065
  4. LITHIUM [Concomitant]
     Active Substance: LITHIUM
     Indication: Bipolar disorder
     Route: 065
  5. HALOPERIDOL [Concomitant]
     Active Substance: HALOPERIDOL
     Indication: Bipolar disorder
     Dosage: UNK UNK, 1/WEEK
     Route: 050
  6. LORAZEPAM [Concomitant]
     Active Substance: LORAZEPAM

REACTIONS (5)
  - Tinnitus [Unknown]
  - Drug level increased [Unknown]
  - Mania [Unknown]
  - Memory impairment [Unknown]
  - Somnolence [Unknown]
